FAERS Safety Report 7909557-7 (Version None)
Quarter: 2011Q4

REPORT INFORMATION
  Report Type: 
  Country: None (occurrence: None)
  Receive Date: 20111111
  Receipt Date: 20111104
  Transmission Date: 20120403
  Serious: Yes (Hospitalization)
  Sender: FDA-Public Use
  Company Number: PHHY2011DE68120

PATIENT
  Sex: Female
  Weight: 55 kg

DRUGS (3)
  1. APYDAN [Interacting]
     Indication: NEURALGIA
     Dosage: 100 MG, TID
  2. GILENYA [Interacting]
     Indication: MULTIPLE SCLEROSIS
     Dosage: 0.5 MG, QD
     Route: 048
     Dates: start: 20110722
  3. GABAPENTIN [Suspect]
     Indication: NEURALGIA
     Dosage: UNK UKN, UNK

REACTIONS (5)
  - HEART RATE IRREGULAR [None]
  - ATRIOVENTRICULAR BLOCK SECOND DEGREE [None]
  - NAUSEA [None]
  - DIZZINESS [None]
  - DRUG INTERACTION [None]
